FAERS Safety Report 9821901 (Version 2)
Quarter: 2014Q1

REPORT INFORMATION
  Report Type: Spontaneous
  Country: US (occurrence: None)
  Receive Date: 20140114
  Receipt Date: 20140207
  Transmission Date: 20141002
  Serious: Yes (Other)
  Sender: FDA-Public Use
  Company Number: CC400204098

PATIENT
  Age: 49 Year
  Sex: Male
  Weight: 103.8 kg

DRUGS (1)
  1. HEPARIN SODIUM [Suspect]
     Indication: CARDIO-RESPIRATORY ARREST
     Dosage: IV, RATE TITRATED
     Route: 042
     Dates: start: 20131214, end: 20131224

REACTIONS (6)
  - Haemoglobin decreased [None]
  - Haematocrit decreased [None]
  - Aspartate aminotransferase increased [None]
  - Alanine aminotransferase increased [None]
  - Drug effect decreased [None]
  - Drug effect increased [None]
